FAERS Safety Report 23158833 (Version 8)
Quarter: 2024Q1

REPORT INFORMATION
  Report Type: Report from Study
  Country: EG (occurrence: EG)
  Receive Date: 20231108
  Receipt Date: 20240106
  Transmission Date: 20240409
  Serious: Yes (Death, Hospitalization, Other)
  Sender: FDA-Public Use
  Company Number: EG-002147023-NVSC2023EG225749

PATIENT
  Age: 0 Year
  Sex: Male

DRUGS (5)
  1. ZOLGENSMA [Suspect]
     Active Substance: ONASEMNOGENE ABEPARVOVEC-XIOI
     Indication: Spinal muscular atrophy
     Dosage: 1 DOSAGE FORM, ONCE/SINGLE
     Route: 042
     Dates: start: 20231014, end: 20231014
  2. VIDROP [Concomitant]
     Indication: Vitamin supplementation
     Dosage: 5 DRP, QD
     Route: 065
     Dates: start: 20230123
  3. CEFOTAXIME VIAL [Concomitant]
     Indication: Product used for unknown indication
     Dosage: UNK, Q12H
     Route: 065
  4. DEXAMETHASONE [Concomitant]
     Active Substance: DEXAMETHASONE
     Indication: Product used for unknown indication
     Dosage: UNK
     Route: 065
  5. DECAL [Concomitant]
     Indication: Blood calcium
     Dosage: 5CM PER DAY
     Route: 065
     Dates: start: 20231018

REACTIONS (17)
  - Pneumonia [Fatal]
  - Cyanosis [Recovered/Resolved]
  - Constipation [Not Recovered/Not Resolved]
  - Concomitant disease aggravated [Unknown]
  - Bronchitis [Unknown]
  - Dyspnoea [Not Recovered/Not Resolved]
  - Wheezing [Not Recovered/Not Resolved]
  - Pyrexia [Recovered/Resolved]
  - Pyrexia [Not Recovered/Not Resolved]
  - Poor quality sleep [Unknown]
  - Urine output increased [Recovered/Resolved]
  - Lethargy [Not Recovered/Not Resolved]
  - Decreased appetite [Recovering/Resolving]
  - Dehydration [Not Recovered/Not Resolved]
  - Weight decreased [Unknown]
  - White blood cell count decreased [Unknown]
  - Aspartate aminotransferase increased [Unknown]

NARRATIVE: CASE EVENT DATE: 20231014
